FAERS Safety Report 4696047-0 (Version None)
Quarter: 2005Q2

REPORT INFORMATION
  Report Type: 
  Country: None (occurrence: None)
  Receive Date: 20050620
  Receipt Date: 20050616
  Transmission Date: 20051028
  Serious: No
  Sender: FDA-Public Use
  Company Number: B0305542A

PATIENT
  Age: 64 Year
  Sex: Male

DRUGS (7)
  1. AVANDIA [Suspect]
     Indication: DIABETES MELLITUS
     Dosage: ORAL
     Route: 048
     Dates: start: 20010919, end: 20021201
  2. METFORMIN HYDROCHORIDE [Concomitant]
  3. GLIPIZIDE [Concomitant]
  4. BEZAFIBRATE [Concomitant]
  5. LISINOPRIL [Concomitant]
  6. ASPIRIN [Concomitant]
  7. FELODIPINE [Concomitant]

REACTIONS (3)
  - APOLIPOPROTEIN A-I DECREASED [None]
  - GLYCOSYLATED HAEMOGLOBIN INCREASED [None]
  - HIGH DENSITY LIPOPROTEIN DECREASED [None]
